FAERS Safety Report 10432132 (Version 1)
Quarter: 2014Q3

REPORT INFORMATION
  Report Type: Spontaneous
  Country: SE (occurrence: SE)
  Receive Date: 20140905
  Receipt Date: 20140905
  Transmission Date: 20150326
  Serious: Yes (Death)
  Sender: FDA-Public Use
  Company Number: SE-BRISTOL-MYERS SQUIBB COMPANY-21347059

PATIENT
  Age: 53 Year
  Sex: Female

DRUGS (10)
  1. AMLODIPINE [Concomitant]
     Active Substance: AMLODIPINE BESYLATE
  2. CLINDAMYCIN [Concomitant]
     Active Substance: CLINDAMYCIN\CLINDAMYCIN PHOSPHATE
  3. KALEORID [Concomitant]
     Active Substance: POTASSIUM CHLORIDE
  4. PREDNISOLONE. [Concomitant]
     Active Substance: PREDNISOLONE
  5. METOPROLOL [Concomitant]
     Active Substance: METOPROLOL
  6. OMEPRAZOLE. [Concomitant]
     Active Substance: OMEPRAZOLE
  7. PROPAVAN [Concomitant]
     Active Substance: PROPIOMAZINE
  8. MORPHINE [Concomitant]
     Active Substance: MORPHINE
  9. ZOPICLONE [Concomitant]
     Active Substance: ZOPICLONE
  10. YERVOY [Suspect]
     Active Substance: IPILIMUMAB
     Indication: MALIGNANT MELANOMA
     Dosage: MOST RECENT DOSE:07JUL14
     Route: 042
     Dates: start: 20140513

REACTIONS (1)
  - Pancreatic cyst rupture [Fatal]

NARRATIVE: CASE EVENT DATE: 20140727
